FAERS Safety Report 9378305 (Version 1)
Quarter: 2013Q3

REPORT INFORMATION
  Report Type: Spontaneous
  Country: DE (occurrence: DE)
  Receive Date: 20130701
  Receipt Date: 20130701
  Transmission Date: 20140515
  Serious: Yes (Other)
  Sender: FDA-Public Use
  Company Number: DE-WATSON-2013-11856

PATIENT
  Age: 61 Year
  Sex: Female

DRUGS (3)
  1. CIPROFLOXACIN HYDROCHLORIDE (UNKNOWN) [Suspect]
     Indication: INFECTION
     Dosage: 250 MG, DAILY
     Route: 048
     Dates: start: 20130204, end: 20130209
  2. CLOTRIMAZOLE [Suspect]
     Indication: VULVOVAGINAL MYCOTIC INFECTION
     Dosage: 1 DF, DAILY
     Route: 067
     Dates: start: 20130311, end: 20130316
  3. AMOXICLAV /01000301/ [Suspect]
     Indication: INFECTION
     Dosage: 875/125, 2X1
     Route: 048
     Dates: start: 20130125, end: 20130204

REACTIONS (1)
  - Hepatitis toxic [Recovering/Resolving]
